FAERS Safety Report 8904403 (Version 1)
Quarter: 2012Q4

REPORT INFORMATION
  Report Type: 
  Country: US (occurrence: US)
  Receive Date: 20121112
  Receipt Date: 20121112
  Transmission Date: 20130627
  Serious: No
  Sender: FDA-Public Use
  Company Number: US-BAYER-2012-115322

PATIENT
  Age: 62 Year
  Sex: Female
  Weight: 113 kg

DRUGS (6)
  1. ALEVE CAPLET/TABLET,MIDOL EXTENDED RELIEF CAPLET [Suspect]
     Indication: GENERAL BODY PAIN
     Dosage: 2 DF, Other Frequency
     Route: 048
     Dates: start: 20121024
  2. AMOXICILLIN [Concomitant]
  3. Z-PAK [Concomitant]
  4. LISINOPRIL/HCTZ [Concomitant]
  5. METOPROLOL [Concomitant]
  6. NEXIUM [Concomitant]

REACTIONS (3)
  - Hypoaesthesia [None]
  - Overdose [None]
  - Dizziness [Not Recovered/Not Resolved]
